FAERS Safety Report 6409512-2 (Version None)
Quarter: 2009Q4

REPORT INFORMATION
  Report Type: 
  Country: None (occurrence: None)
  Receive Date: 20091013
  Receipt Date: 20091007
  Transmission Date: 20100525
  Serious: Yes (Hospitalization)
  Sender: FDA-Public Use
  Company Number: WAES 0907USA01205

PATIENT
  Age: 71 Year
  Sex: Male

DRUGS (15)
  1. CAP VORINOSTAT UNK [Suspect]
     Indication: DIFFUSE LARGE B-CELL LYMPHOMA
     Dosage: PO
     Route: 048
     Dates: start: 20090604, end: 20090611
  2. ETOPOSIDE [Suspect]
     Indication: DIFFUSE LARGE B-CELL LYMPHOMA
     Dates: start: 20090604, end: 20090611
  3. RITUXIMAB UNK [Suspect]
     Indication: DIFFUSE LARGE B-CELL LYMPHOMA
     Dates: start: 20090604, end: 20090611
  4. CYCLOPHOSPHAMIDE [Suspect]
     Indication: DIFFUSE LARGE B-CELL LYMPHOMA
     Dates: start: 20090604, end: 20090611
  5. AMIODARONE HYDROCHLORIDE [Concomitant]
  6. ASCORBIC ACID [Concomitant]
  7. ASPIRIN [Concomitant]
  8. ATORVASTATIN [Concomitant]
  9. FLUTICASONE PROPIONATE [Concomitant]
  10. LEVOTHYROXINE SODIUM [Concomitant]
  11. METOPROLOL TARTRATE [Concomitant]
  12. ONDANSETRON [Concomitant]
  13. PREDNISONE [Concomitant]
  14. RAMIPRIL [Concomitant]
  15. VITAMINS (UNSPECIFIED) [Concomitant]

REACTIONS (7)
  - ASTHENIA [None]
  - FATIGUE [None]
  - FEBRILE NEUTROPENIA [None]
  - NAUSEA [None]
  - THROMBOCYTOPENIA [None]
  - VOMITING [None]
  - WHITE BLOOD CELL COUNT DECREASED [None]
